FAERS Safety Report 11720661 (Version 2)
Quarter: 2015Q4

REPORT INFORMATION
  Report Type: Spontaneous
  Country: JP (occurrence: JP)
  Receive Date: 20151110
  Receipt Date: 20151201
  Transmission Date: 20160304
  Serious: Yes (Hospitalization)
  Sender: FDA-Public Use
  Company Number: JP-SA-2015SA178754

PATIENT
  Age: 37 Year
  Sex: Male

DRUGS (6)
  1. CISPLATIN. [Suspect]
     Active Substance: CISPLATIN
     Indication: OESOPHAGEAL SQUAMOUS CELL CARCINOMA STAGE IV
     Dosage: ON DAY 1, 8; TOTAL TWO COURSES
     Route: 065
     Dates: start: 201110
  2. FLUOROURACIL. [Suspect]
     Active Substance: FLUOROURACIL
     Indication: OESOPHAGEAL SQUAMOUS CELL CARCINOMA STAGE IV
     Dosage: DAYS 1-5, 8-12, TOTAL TWO COURSES
     Route: 065
     Dates: start: 201110
  3. DOCETAXEL. [Suspect]
     Active Substance: DOCETAXEL
     Indication: OESOPHAGEAL SQUAMOUS CELL CARCINOMA STAGE IV
     Dosage: ON DAY 1; TOTAL THREE COURSES
     Route: 065
     Dates: start: 2011, end: 2011
  4. TAZOBACTAM SODIUM/PIPERACILLIN SODIUM [Concomitant]
  5. FLUOROURACIL. [Suspect]
     Active Substance: FLUOROURACIL
     Indication: OESOPHAGEAL SQUAMOUS CELL CARCINOMA STAGE IV
     Dosage: DAY 1-4; TOTAL THREE COURSES
     Route: 065
     Dates: start: 2011, end: 2011
  6. CISPLATIN. [Suspect]
     Active Substance: CISPLATIN
     Indication: OESOPHAGEAL SQUAMOUS CELL CARCINOMA STAGE IV
     Dosage: DAYS 1-4; TOTAL THREE COURSES
     Route: 065
     Dates: start: 2011, end: 2011

REACTIONS (15)
  - Cholecystocholangitis [Recovering/Resolving]
  - Gallbladder disorder [Recovering/Resolving]
  - Pneumothorax [Recovering/Resolving]
  - Disseminated intravascular coagulation [Recovering/Resolving]
  - Fibrin degradation products increased [Recovering/Resolving]
  - Oxygen saturation decreased [Recovering/Resolving]
  - Fungaemia [Recovering/Resolving]
  - Hepatic enzyme increased [Recovering/Resolving]
  - Computerised tomogram thorax abnormal [Recovering/Resolving]
  - Chest X-ray abnormal [Recovering/Resolving]
  - Acute respiratory distress syndrome [Recovering/Resolving]
  - Pyrexia [Recovering/Resolving]
  - C-reactive protein increased [Recovering/Resolving]
  - Pneumonia [Recovering/Resolving]
  - Trichosporon infection [Recovering/Resolving]
